FAERS Safety Report 9411571 (Version 1)
Quarter: 2013Q3

REPORT INFORMATION
  Report Type: Report from Study
  Country: CL (occurrence: CL)
  Receive Date: 20130722
  Receipt Date: 20130722
  Transmission Date: 20140515
  Serious: Yes (Other)
  Sender: FDA-Public Use
  Company Number: CL-ROCHE-1251209

PATIENT
  Age: 64 Year
  Sex: Male
  Weight: 74 kg

DRUGS (2)
  1. XELODA [Suspect]
     Indication: RECTAL CANCER
     Dosage: FREQUENCY:14 DAYS PER CYCLE
     Route: 048
     Dates: start: 20130430
  2. OXALIPLATIN [Suspect]
     Indication: RECTAL CANCER
     Route: 042
     Dates: start: 20130430

REACTIONS (3)
  - Metastases to liver [Not Recovered/Not Resolved]
  - Decreased appetite [Not Recovered/Not Resolved]
  - Muscular weakness [Not Recovered/Not Resolved]
